FAERS Safety Report 6611299-5 (Version None)
Quarter: 2010Q1

REPORT INFORMATION
  Report Type: 
  Country: None (occurrence: None)
  Receive Date: 20100303
  Receipt Date: 20100222
  Transmission Date: 20100710
  Serious: Yes (Death, Hospitalization)
  Sender: FDA-Public Use
  Company Number: US-JNJFOC-20090803207

PATIENT
  Sex: Male

DRUGS (3)
  1. REMICADE [Suspect]
     Indication: CROHN'S DISEASE
     Route: 042
     Dates: start: 20070401, end: 20080601
  2. REMICADE [Suspect]
     Route: 042
     Dates: start: 20070401, end: 20080601
  3. PREDNISONE [Concomitant]

REACTIONS (10)
  - BEHCET'S SYNDROME [None]
  - CHOLANGITIS SCLEROSING [None]
  - DERMATITIS [None]
  - EPSTEIN-BARR VIRUS INFECTION [None]
  - FOLLICULITIS [None]
  - HAEMORRHAGE [None]
  - HISTIOCYTOSIS HAEMATOPHAGIC [None]
  - METABOLIC ACIDOSIS [None]
  - PERIPHERAL T-CELL LYMPHOMA UNSPECIFIED [None]
  - TRANSAMINASES INCREASED [None]
